FAERS Safety Report 6025628-7 (Version None)
Quarter: 2008Q4

REPORT INFORMATION
  Report Type: 
  Country: None (occurrence: None)
  Receive Date: 20081231
  Receipt Date: 20081224
  Transmission Date: 20090506
  Serious: No
  Sender: FDA-Public Use
  Company Number: US-B.I. PHARMACEUTICALS,INC./RIDGEFIELD-2008-BP-16125PF

PATIENT
  Sex: Male
  Weight: 86 kg

DRUGS (5)
  1. SPIRIVA [Suspect]
     Indication: DYSPNOEA
     Dosage: 18MCG
     Dates: start: 20080901, end: 20080901
  2. VIAGRA [Suspect]
     Indication: ERECTILE DYSFUNCTION
     Dosage: 50MG
  3. BENICAR [Concomitant]
     Indication: HYPERTENSION
     Dosage: 10MG
  4. PROTOPIC [Concomitant]
     Indication: ECZEMA
  5. CHERALODIX BLADDER 2.1 [Concomitant]

REACTIONS (2)
  - DYSPNOEA [None]
  - DYSURIA [None]
